FAERS Safety Report 9002214 (Version 1)
Quarter: 2013Q1

REPORT INFORMATION
  Report Type: Spontaneous
  Country: US (occurrence: US)
  Receive Date: 20130107
  Receipt Date: 20130107
  Transmission Date: 20140127
  Serious: Yes (Life-Threatening)
  Sender: FDA-Public Use
  Company Number: US-MERCK-1301USA000944

PATIENT
  Age: 59 Year
  Sex: Male

DRUGS (7)
  1. SINGULAIR [Suspect]
     Dosage: 10 MG, BID
  2. ALBUTEROL [Suspect]
     Dosage: UNK
  3. IPRATROPIUM BROMIDE [Suspect]
  4. ACETYLCYSTEINE [Suspect]
  5. OFLOXACIN [Suspect]
     Dosage: UNK, UNK, UNK, BID
  6. CIPROFLOXACIN HYDROCHLORIDE [Suspect]
     Dosage: UNK, UNK, UNK, BID
  7. OXYGEN [Concomitant]

REACTIONS (7)
  - Angina pectoris [Unknown]
  - Cardiac disorder [Unknown]
  - Drug ineffective [Unknown]
  - Dyspnoea [Unknown]
  - Feeling abnormal [Unknown]
  - Muscle disorder [Unknown]
  - Palpitations [Unknown]
